FAERS Safety Report 7516023-X (Version None)
Quarter: 2011Q2

REPORT INFORMATION
  Report Type: 
  Country: None (occurrence: None)
  Receive Date: 20110520
  Receipt Date: 20110510
  Transmission Date: 20111010
  Serious: Yes (Hospitalization)
  Sender: FDA-Public Use
  Company Number: UTC-007019

PATIENT
  Age: 18 Year
  Sex: Female

DRUGS (1)
  1. REMODULIN [Suspect]
     Indication: PULMONARY ARTERIAL HYPERTENSION
     Dosage: 324 UG/KG (0.225 UG/KG, 1 IN 1 MIN) INTRAVENOUS
     Route: 042
     Dates: start: 20060901

REACTIONS (12)
  - DYSPNOEA [None]
  - NAUSEA [None]
  - INFUSION [None]
  - HAEMOPTYSIS [None]
  - DEVICE MALFUNCTION [None]
  - COUGH [None]
  - BLOOD PRESSURE [None]
  - BLOOD SODIUM [None]
  - BLOOD PRESSURE DECREASED [None]
  - HEADACHE [None]
  - FLUSHING [None]
  - BACK PAIN [None]
